FAERS Safety Report 8106299-2 (Version None)
Quarter: 2012Q1

REPORT INFORMATION
  Report Type: 
  Country: None (occurrence: None)
  Receive Date: 20120202
  Receipt Date: 20120126
  Transmission Date: 20120608
  Serious: Yes (Hospitalization)
  Sender: FDA-Public Use
  Company Number: GR-US-EMD SERONO, INC.-7109927

PATIENT
  Age: 65 Year
  Sex: Female

DRUGS (5)
  1. SALOSPIR [Concomitant]
     Dates: start: 20120101
  2. PRILOSEC [Concomitant]
     Indication: GASTROINTESTINAL DISORDER
     Dates: start: 20070101, end: 20111223
  3. PRILOSEC [Concomitant]
     Dates: start: 20120101
  4. SALOSPIR [Concomitant]
     Indication: CARDIOVASCULAR INSUFFICIENCY
     Dates: start: 20070101, end: 20111223
  5. REBIF [Suspect]
     Indication: MULTIPLE SCLEROSIS
     Dates: start: 20111001

REACTIONS (1)
  - DUODENAL ULCER HAEMORRHAGE [None]
